FAERS Safety Report 8069078-0 (Version None)
Quarter: 2012Q1

REPORT INFORMATION
  Report Type: 
  Country: None (occurrence: None)
  Receive Date: 20120125
  Receipt Date: 20120123
  Transmission Date: 20120608
  Serious: Yes (Death, Other)
  Sender: FDA-Public Use
  Company Number: PHHY2012US005925

PATIENT
  Age: 7 Month
  Sex: Male

DRUGS (3)
  1. MORPHINE [Suspect]
     Indication: SEDATION
  2. LORAZEPAM [Suspect]
     Indication: SEDATION
  3. FENTANYL [Suspect]
     Indication: SEDATION

REACTIONS (4)
  - CARDIAC FAILURE CONGESTIVE [None]
  - PSYCHOMOTOR HYPERACTIVITY [None]
  - INSOMNIA [None]
  - DELIRIUM [None]
